FAERS Safety Report 19085207 (Version 1)
Quarter: 2021Q2

REPORT INFORMATION
  Report Type: Report from Study
  Country: CA (occurrence: CA)
  Receive Date: 20210401
  Receipt Date: 20210401
  Transmission Date: 20210717
  Serious: Yes (Other)
  Sender: FDA-Public Use
  Company Number: CA-PFIZER INC-2021334840

PATIENT
  Sex: Female

DRUGS (10)
  1. ACTEMRA [Suspect]
     Active Substance: TOCILIZUMAB
     Indication: RHEUMATOID ARTHRITIS
     Dosage: 440 MG ONCE EVERY 4 WEEKS
     Route: 042
  2. CITALOPRAM HYDROBROMIDE. [Concomitant]
     Active Substance: CITALOPRAM HYDROBROMIDE
     Dosage: 20 MG, 1X/DAY
     Route: 048
  3. METHOTREXATE SODIUM. [Suspect]
     Active Substance: METHOTREXATE SODIUM
     Route: 065
  4. RITUXIMAB. [Suspect]
     Active Substance: RITUXIMAB
     Indication: RHEUMATOID ARTHRITIS
     Dosage: UNK
     Route: 042
  5. RISEDRONATE SODIUM. [Concomitant]
     Active Substance: RISEDRONATE SODIUM
     Dosage: 35 MG, WEEKLY
     Route: 048
  6. ROSUVASTATIN CALCIUM. [Concomitant]
     Active Substance: ROSUVASTATIN CALCIUM
  7. ACTEMRA [Suspect]
     Active Substance: TOCILIZUMAB
     Dosage: 220 MG, 1 EVERY 4 WEEKS
     Route: 042
  8. FOLIC ACID. [Concomitant]
     Active Substance: FOLIC ACID
  9. PREDNISONE. [Concomitant]
     Active Substance: PREDNISONE
  10. CELEBREX [Concomitant]
     Active Substance: CELECOXIB

REACTIONS (16)
  - Blood immunoglobulin G increased [Unknown]
  - Costochondritis [Unknown]
  - Neck pain [Unknown]
  - Arthropathy [Unknown]
  - Joint effusion [Unknown]
  - Therapeutic product effect incomplete [Unknown]
  - Transaminases increased [Unknown]
  - Arthralgia [Unknown]
  - Blood cholesterol increased [Unknown]
  - Infusion related reaction [Unknown]
  - Joint stiffness [Unknown]
  - Foot deformity [Unknown]
  - Joint swelling [Unknown]
  - Musculoskeletal chest pain [Unknown]
  - Lipids increased [Unknown]
  - Muscular weakness [Unknown]
